FAERS Safety Report 7473261-2 (Version None)
Quarter: 2011Q2

REPORT INFORMATION
  Report Type: 
  Country: None (occurrence: None)
  Receive Date: 20110503
  Receipt Date: 20110420
  Transmission Date: 20111010
  Serious: Yes (Hospitalization, Other)
  Sender: FDA-Public Use
  Company Number: 2010AC000332

PATIENT
  Age: 62 Year
  Sex: Female

DRUGS (9)
  1. COREG [Concomitant]
  2. PROTONIX [Concomitant]
  3. DIGOXIN [Suspect]
     Dosage: 0.125 MG;QD;PO
     Route: 048
     Dates: start: 19910101, end: 20000101
  4. VICODIN [Concomitant]
  5. ASPIRIN [Concomitant]
  6. DIGOXIN [Suspect]
     Dosage: 0.125 MG;QD;PO
     Route: 048
     Dates: start: 20050125, end: 20090824
  7. PLAVIX [Concomitant]
  8. ZOCOR [Concomitant]
  9. NITROGLYCERIN [Concomitant]

REACTIONS (15)
  - VOMITING [None]
  - HYPOPHAGIA [None]
  - EPISTAXIS [None]
  - ASTHENIA [None]
  - DIZZINESS [None]
  - DEHYDRATION [None]
  - CARDIAC FAILURE [None]
  - LOSS OF CONSCIOUSNESS [None]
  - RENAL FAILURE [None]
  - SYNCOPE [None]
  - FATIGUE [None]
  - WEIGHT DECREASED [None]
  - BALANCE DISORDER [None]
  - INJURY [None]
  - HEADACHE [None]
